FAERS Safety Report 14512270 (Version 2)
Quarter: 2018Q1

REPORT INFORMATION
  Report Type: Report from Study
  Country: US (occurrence: US)
  Receive Date: 20180209
  Receipt Date: 20180223
  Transmission Date: 20180509
  Serious: Yes (Hospitalization, Other)
  Sender: FDA-Public Use
  Company Number: US-SAOL THERAPEUTICS-2018SAO00164

PATIENT
  Age: 38 Year
  Sex: Male
  Weight: 79.37 kg

DRUGS (3)
  1. COMPOUNDED BACLOFEN [Suspect]
     Active Substance: BACLOFEN
     Dosage: 359.29 ?G, \DAY
     Route: 037
     Dates: start: 20170807, end: 20170818
  2. COMPOUNDED BACLOFEN [Suspect]
     Active Substance: BACLOFEN
     Dosage: 350.07 ?G, \DAY
     Route: 037
  3. COMPOUNDED BACLOFEN [Suspect]
     Active Substance: BACLOFEN
     Dosage: 175.14 ?G, \DAY
     Route: 037
     Dates: start: 20170818

REACTIONS (6)
  - Cerebrospinal fistula [Recovered/Resolved]
  - Fall [Recovered/Resolved]
  - Implant site extravasation [Recovered/Resolved]
  - Implant site infection [Recovered/Resolved]
  - Staphylococcal infection [Recovered/Resolved]
  - Cerebrospinal fluid leakage [Recovered/Resolved]

NARRATIVE: CASE EVENT DATE: 201708
